FAERS Safety Report 22036603 (Version 2)
Quarter: 2023Q1

REPORT INFORMATION
  Report Type: Spontaneous
  Country: FR (occurrence: FR)
  Receive Date: 20230225
  Receipt Date: 20230320
  Transmission Date: 20230417
  Serious: Yes (Life-Threatening, Hospitalization)
  Sender: FDA-Public Use
  Company Number: None

PATIENT
  Age: 57 Year
  Sex: Male
  Weight: 71 kg

DRUGS (1)
  1. IRBESARTAN [Suspect]
     Active Substance: IRBESARTAN
     Indication: Hypertension
     Dosage: UNK
     Route: 048

REACTIONS (3)
  - Chronic gastritis [Not Recovered/Not Resolved]
  - Gastritis [Not Recovered/Not Resolved]
  - Protein-losing gastroenteropathy [Not Recovered/Not Resolved]

NARRATIVE: CASE EVENT DATE: 20211001
